FAERS Safety Report 15202077 (Version 4)
Quarter: 2018Q3

REPORT INFORMATION
  Report Type: Spontaneous
  Country: US (occurrence: US)
  Receive Date: 20180726
  Receipt Date: 20180807
  Transmission Date: 20181010
  Serious: Yes (Hospitalization, Other)
  Sender: FDA-Public Use
  Company Number: US-PFIZER INC-2018295415

PATIENT
  Age: 77 Year
  Sex: Male

DRUGS (2)
  1. CYCLOPHOSPHAMIDE. [Interacting]
     Active Substance: CYCLOPHOSPHAMIDE
     Indication: GLOMERULONEPHRITIS RAPIDLY PROGRESSIVE
     Dosage: UNK
  2. AMIODARONE HCL [Suspect]
     Active Substance: AMIODARONE HYDROCHLORIDE
     Indication: ATRIAL FIBRILLATION
     Dosage: UNK

REACTIONS (3)
  - Product use in unapproved indication [Unknown]
  - Drug interaction [Recovering/Resolving]
  - Pulmonary toxicity [Recovering/Resolving]
